FAERS Safety Report 8184357-4 (Version None)
Quarter: 2012Q1

REPORT INFORMATION
  Report Type: 
  Country: None (occurrence: None)
  Receive Date: 20120305
  Receipt Date: 20120221
  Transmission Date: 20120608
  Serious: Yes (Hospitalization, Other)
  Sender: FDA-Public Use
  Company Number: US-ELI_LILLY_AND_COMPANY-US200910006024

PATIENT
  Sex: Female

DRUGS (16)
  1. ZYPREXA [Suspect]
     Dosage: 20 MG, EACH EVENING
     Route: 048
  2. MAXZIDE [Concomitant]
  3. HALDOL [Concomitant]
  4. RISPERDAL [Concomitant]
  5. PROTONIX [Concomitant]
  6. METOPROLOL SUCCINATE [Concomitant]
  7. DEPAKOTE [Concomitant]
  8. KLONOPIN [Concomitant]
  9. ATIVAN [Concomitant]
  10. TOPAMAX [Concomitant]
  11. ATENOLOL [Concomitant]
  12. ZYPREXA [Suspect]
     Dosage: 5 MG, BID
     Route: 048
  13. COGENTIN [Concomitant]
  14. ZYPREXA [Suspect]
     Indication: BIPOLAR DISORDER
     Dosage: 15 MG, EACH EVENING
     Route: 048
     Dates: start: 20031001
  15. LEXAPRO [Concomitant]
  16. REGLAN [Concomitant]

REACTIONS (11)
  - DEEP VEIN THROMBOSIS [None]
  - DIABETES MELLITUS [None]
  - ATRIAL FIBRILLATION [None]
  - LEUKOCYTOSIS [None]
  - CARDIAC FAILURE CONGESTIVE [None]
  - DIABETIC NEUROPATHY [None]
  - BRADYARRHYTHMIA [None]
  - VENTRICULAR DYSFUNCTION [None]
  - RENAL FAILURE ACUTE [None]
  - MYOCARDIAL INFARCTION [None]
  - VENTRICULAR ARRHYTHMIA [None]
